FAERS Safety Report 8837085 (Version 3)
Quarter: 2013Q1

REPORT INFORMATION
  Report Type: Spontaneous
  Country: IT (occurrence: IT)
  Receive Date: 20121012
  Receipt Date: 20130205
  Transmission Date: 20140127
  Serious: Yes (Hospitalization)
  Sender: FDA-Public Use
  Company Number: IT-BRISTOL-MYERS SQUIBB COMPANY-17014051

PATIENT
  Age: 71 Year
  Sex: Female

DRUGS (5)
  1. COUMADIN TABS 5 MG [Suspect]
     Dosage: 1DF:1DOSE
     Dates: start: 20120620, end: 20120627
  2. APROVEL TABS 300 MG [Suspect]
     Route: 048
     Dates: start: 20120626, end: 20120627
  3. MODURETIC TABS 5MG/50MG [Suspect]
     Dosage: 1DF:5MG+50 MG
     Route: 048
  4. NORVASC [Suspect]
     Dosage: TAB
     Route: 048
     Dates: start: 20120622, end: 20120627
  5. ATENOLOL TABS 100 MG [Suspect]
     Route: 048
     Dates: start: 20120620, end: 20120627

REACTIONS (3)
  - Bradycardia [Not Recovered/Not Resolved]
  - Presyncope [Not Recovered/Not Resolved]
  - Joint injury [Unknown]
